FAERS Safety Report 4577613-X (Version None)
Quarter: 2005Q1

REPORT INFORMATION
  Report Type: 
  Country: None (occurrence: None)
  Receive Date: 20050208
  Receipt Date: 20050125
  Transmission Date: 20050727
  Serious: Yes (Disabling)
  Sender: FDA-Public Use
  Company Number: 2005SE00581

PATIENT
  Age: 72 Year
  Sex: Female

DRUGS (4)
  1. MARCAINA [Suspect]
     Indication: LOCAL ANAESTHESIA
     Dosage: 6.67 MG ONCE PNEU
     Route: 053
     Dates: start: 20050118, end: 20050118
  2. LIDOCAINE HCL [Suspect]
     Indication: LOCAL ANAESTHESIA
     Dosage: 1 MG ONCE PNEU
     Route: 053
     Dates: start: 20050118, end: 20050118
  3. HYALURONIDASE [Suspect]
     Indication: LOCAL ANAESTHESIA
     Dosage: 2 ML ONCE  PNEU
     Route: 053
     Dates: start: 20050118, end: 20050118
  4. CONCENTRATED ELECTROLYTIC SOLUTION [Suspect]
     Indication: LOCAL ANAESTHESIA
     Dosage: 1 ML ONCE  PNEU
     Route: 053
     Dates: start: 20050118, end: 20050118

REACTIONS (6)
  - ANAESTHETIC COMPLICATION [None]
  - EYELID PTOSIS [None]
  - MYDRIASIS [None]
  - OPTIC NERVE DISORDER [None]
  - ORBITAL OEDEMA [None]
  - PHARMACEUTICAL PRODUCT COMPLAINT [None]
